FAERS Safety Report 5550055-6 (Version None)
Quarter: 2007Q4

REPORT INFORMATION
  Report Type: 
  Country: None (occurrence: None)
  Receive Date: 20071212
  Receipt Date: 20071129
  Transmission Date: 20080405
  Serious: Yes (Other)
  Sender: FDA-Public Use
  Company Number: IL-AMGEN-UK254744

PATIENT
  Sex: Female

DRUGS (1)
  1. NEULASTIM [Suspect]
     Indication: CHEMOTHERAPY
     Route: 058

REACTIONS (3)
  - DRUG INEFFECTIVE [None]
  - NEUTROPENIA [None]
  - THROMBOCYTOPENIA [None]
